FAERS Safety Report 17930860 (Version 1)
Quarter: 2020Q2

REPORT INFORMATION
  Report Type: Spontaneous
  Country: GR (occurrence: GR)
  Receive Date: 20200623
  Receipt Date: 20200623
  Transmission Date: 20200714
  Serious: Yes (Disabling)
  Sender: FDA-Public Use
  Company Number: GR-JNJFOC-20200624692

PATIENT
  Age: 23 Year
  Sex: Male
  Weight: 83 kg

DRUGS (1)
  1. REGAINE SOLUTION 5% [Suspect]
     Active Substance: MINOXIDIL
     Indication: ANDROGENETIC ALOPECIA
     Route: 003
     Dates: start: 20200405, end: 20200412

REACTIONS (1)
  - Testicular disorder [Recovered/Resolved]

NARRATIVE: CASE EVENT DATE: 20200409
